FAERS Safety Report 26011398 (Version 1)
Quarter: 2025Q4

REPORT INFORMATION
  Report Type: Other
  Country: TN (occurrence: TN)
  Receive Date: 20251107
  Receipt Date: 20251107
  Transmission Date: 20260117
  Serious: Yes (Hospitalization, Other)
  Sender: OMNIVIUM PHARMACEUTICALS LLC
  Company Number: TN-Omnivium Pharmaceuticals LLC-2188083

PATIENT
  Age: 27 Year
  Sex: Female

DRUGS (1)
  1. NUMBRINO [Suspect]
     Active Substance: COCAINE HYDROCHLORIDE
     Indication: Product used for unknown indication

REACTIONS (1)
  - Intestinal ischaemia [Recovered/Resolved]
